FAERS Safety Report 12067151 (Version 3)
Quarter: 2016Q2

REPORT INFORMATION
  Report Type: Spontaneous
  Country: US (occurrence: US)
  Receive Date: 20160211
  Receipt Date: 20160512
  Transmission Date: 20160815
  Serious: Yes (Hospitalization, Other)
  Sender: FDA-Public Use
  Company Number: US-ELI_LILLY_AND_COMPANY-US201602000702

PATIENT
  Age: 52 Year
  Sex: Female
  Weight: 81.8 kg

DRUGS (2)
  1. HUMALOG MIX75/25 [Suspect]
     Active Substance: INSULIN LISPRO
     Indication: DIABETES MELLITUS
     Dosage: 10 U, EACH MORNING
     Route: 058
     Dates: start: 20130611
  2. HUMALOG MIX75/25 [Suspect]
     Active Substance: INSULIN LISPRO
     Dosage: 5 U, EACH EVENING
     Route: 058
     Dates: start: 20130611

REACTIONS (13)
  - Hepatitis B [Unknown]
  - Hepatic cyst [Unknown]
  - Blood glucose increased [Unknown]
  - Drug ineffective [Unknown]
  - Hepatitis C [Unknown]
  - Glycosylated haemoglobin increased [Unknown]
  - Hepatic cirrhosis [Unknown]
  - Ascites [Unknown]
  - Drug dose omission [Unknown]
  - Incorrect drug administration duration [Unknown]
  - Feeling abnormal [Unknown]
  - Portal hypertension [Unknown]
  - Myocardial infarction [Unknown]

NARRATIVE: CASE EVENT DATE: 201405
